FAERS Safety Report 26047384 (Version 1)
Quarter: 2025Q4

REPORT INFORMATION
  Report Type: Spontaneous
  Country: JP (occurrence: JP)
  Receive Date: 20251114
  Receipt Date: 20251114
  Transmission Date: 20260117
  Serious: Yes (Life-Threatening, Hospitalization)
  Sender: EISAI
  Company Number: JP-Eisai-EC-2025-200035

PATIENT
  Age: 59 Year
  Sex: Male
  Weight: 59 kg

DRUGS (10)
  1. HALAVEN [Suspect]
     Active Substance: ERIBULIN MESYLATE
     Indication: Leiomyosarcoma
     Route: 041
     Dates: start: 20191106
  2. HALAVEN [Suspect]
     Active Substance: ERIBULIN MESYLATE
     Dosage: ON A 2-DAY-ON AND 1-DAY-OFF SCHEDULE
     Route: 041
  3. HALAVEN [Suspect]
     Active Substance: ERIBULIN MESYLATE
     Dosage: ON A 2-DAY-ON AND 2-DAY-OFF SCHEDULE
     Route: 041
  4. LINAGLIPTIN [Concomitant]
     Active Substance: LINAGLIPTIN
     Indication: Diabetes mellitus
     Dosage: DOSE AND FREQUENCY UNKNOWN
  5. MITIGLINIDE [Concomitant]
     Active Substance: MITIGLINIDE
     Indication: Diabetes mellitus
     Dosage: DOSE AND FREQUENCY UNKNOWN
  6. IPRAGLIFLOZIN L-PROLINE [Concomitant]
     Active Substance: IPRAGLIFLOZIN L-PROLINE
     Indication: Diabetes mellitus
     Dosage: DOSE AND FREQUENCY UNKNOWN
  7. PREDNISOLONE [Concomitant]
     Active Substance: PREDNISOLONE
     Indication: Post intensive care syndrome
     Dosage: DOSE AND FREQUENCY UNKNOWN
  8. PREGABALIN [Concomitant]
     Active Substance: PREGABALIN
     Indication: Pain
     Dosage: DOSE AND FREQUENCY UNKNOWN
  9. LOXOPROFEN SODIUM [Concomitant]
     Active Substance: LOXOPROFEN SODIUM
     Indication: Pain
     Dosage: DOSE AND FREQUENCY UNKNOWN
  10. TRAMCET [Concomitant]
     Active Substance: ACETAMINOPHEN\TRAMADOL
     Indication: Antipyresis
     Dosage: DOSE AND FREQUENCY UNKNOWN

REACTIONS (2)
  - Shock [Recovered/Resolved]
  - Renal failure [Not Recovered/Not Resolved]

NARRATIVE: CASE EVENT DATE: 20220413
